FAERS Safety Report 11387370 (Version 2)
Quarter: 2015Q3

REPORT INFORMATION
  Report Type: Report from Study
  Country: US (occurrence: US)
  Receive Date: 20150817
  Receipt Date: 20150914
  Transmission Date: 20151125
  Serious: Yes (Other)
  Sender: FDA-Public Use
  Company Number: US-BAYER-2015-398498

PATIENT
  Age: 86 Year
  Sex: Female
  Weight: 52.43 kg

DRUGS (17)
  1. DIGITEK [Concomitant]
     Active Substance: DIGOXIN
  2. LEVOTHYROXINE. [Concomitant]
     Active Substance: LEVOTHYROXINE
  3. ROFLUMILAST [Concomitant]
     Active Substance: ROFLUMILAST
  4. VENLAFAXINE HYDROCHLORIDE. [Concomitant]
     Active Substance: VENLAFAXINE HYDROCHLORIDE
  5. MUCINEX [Concomitant]
     Active Substance: GUAIFENESIN
  6. ADEMPAS [Suspect]
     Active Substance: RIOCIGUAT
     Indication: PULMONARY ARTERIAL HYPERTENSION
     Dosage: UNK
     Route: 048
     Dates: start: 20150720
  7. CALCIUM [Concomitant]
     Active Substance: CALCIUM
  8. ALBUTEROL. [Concomitant]
     Active Substance: ALBUTEROL
  9. FLOVENT HFA [Concomitant]
     Active Substance: FLUTICASONE PROPIONATE
  10. ESTRADIOL. [Concomitant]
     Active Substance: ESTRADIOL
  11. COUMADIN [Concomitant]
     Active Substance: WARFARIN SODIUM
  12. DIOVAN [Concomitant]
     Active Substance: VALSARTAN
  13. ADEMPAS [Suspect]
     Active Substance: RIOCIGUAT
     Indication: PULMONARY ARTERIAL HYPERTENSION
     Dosage: 1 MG, TID
     Route: 048
     Dates: end: 20150803
  14. SUDAFED [Concomitant]
     Active Substance: PSEUDOEPHEDRINE HYDROCHLORIDE
  15. POTASSIUM [Concomitant]
     Active Substance: POTASSIUM
  16. NORVASC [Concomitant]
     Active Substance: AMLODIPINE BESYLATE
  17. TRACLEER [Concomitant]
     Active Substance: BOSENTAN
     Dosage: UNK
     Dates: start: 2012

REACTIONS (5)
  - Nausea [Recovered/Resolved]
  - Swelling face [Recovered/Resolved]
  - Dyspnoea [Recovered/Resolved]
  - Headache [Recovered/Resolved]
  - Oxygen supplementation [Recovered/Resolved]

NARRATIVE: CASE EVENT DATE: 20150725
